FAERS Safety Report 6405477-8 (Version None)
Quarter: 2009Q4

REPORT INFORMATION
  Report Type: 
  Country: None (occurrence: None)
  Receive Date: 20091019
  Receipt Date: 20091013
  Transmission Date: 20100525
  Serious: Yes (Other)
  Sender: FDA-Public Use
  Company Number: B0598495A

PATIENT
  Age: 33 Year
  Sex: Male

DRUGS (1)
  1. CIGANON CQ1 [Suspect]
     Indication: SMOKING CESSATION THERAPY
     Dosage: 14MG PER DAY
     Route: 062

REACTIONS (8)
  - DEPRESSED LEVEL OF CONSCIOUSNESS [None]
  - HEADACHE [None]
  - LETHARGY [None]
  - NASAL CONGESTION [None]
  - PYREXIA [None]
  - RESPIRATORY DISTRESS [None]
  - SALIVARY HYPERSECRETION [None]
  - TREMOR [None]
